FAERS Safety Report 24247403 (Version 1)
Quarter: 2024Q3

REPORT INFORMATION
  Report Type: Report from Study
  Country: CA (occurrence: CA)
  Receive Date: 20240826
  Receipt Date: 20240826
  Transmission Date: 20241017
  Serious: Yes (Death)
  Sender: ABBVIE
  Company Number: CA-ABBVIE-5893755

PATIENT
  Age: 80 Year
  Sex: Male

DRUGS (1)
  1. LUPRON DEPOT [Suspect]
     Active Substance: LEUPROLIDE ACETATE
     Indication: Prostate cancer
     Route: 030
     Dates: start: 20220113, end: 20240622

REACTIONS (1)
  - Death [Fatal]

NARRATIVE: CASE EVENT DATE: 20240622
